FAERS Safety Report 17473170 (Version 2)
Quarter: 2020Q2

REPORT INFORMATION
  Report Type: Spontaneous
  Country: DE (occurrence: DE)
  Receive Date: 20200228
  Receipt Date: 20200626
  Transmission Date: 20200713
  Serious: Yes (Hospitalization)
  Sender: FDA-Public Use
  Company Number: NVSC2020DE050087

PATIENT
  Age: 59 Year
  Sex: Male

DRUGS (21)
  1. PROMETHAZINE [Suspect]
     Active Substance: PROMETHAZINE HYDROCHLORIDE
     Indication: RESTLESSNESS
     Dosage: 150 MG, QD
     Route: 065
     Dates: start: 20190423, end: 20190426
  2. ZOPICLONE [Suspect]
     Active Substance: ZOPICLONE
     Dosage: 3.75 MG, QD
     Route: 065
     Dates: start: 20190401, end: 20190426
  3. BISOPROLOL [Concomitant]
     Active Substance: BISOPROLOL
     Indication: PRODUCT USED FOR UNKNOWN INDICATION
     Dosage: 2.5 MG
     Route: 065
  4. TRAZODONE [Suspect]
     Active Substance: TRAZODONE HYDROCHLORIDE
     Indication: DEPRESSIVE SYMPTOM
     Dosage: 25-100 MG
     Route: 065
     Dates: start: 20190321, end: 20190401
  5. TRAZODONE [Suspect]
     Active Substance: TRAZODONE HYDROCHLORIDE
     Indication: SLEEP DISORDER
     Dosage: 125 MG, QD
     Route: 065
     Dates: start: 20190415, end: 20190423
  6. ZOPICLONE [Suspect]
     Active Substance: ZOPICLONE
     Indication: PRODUCT USED FOR UNKNOWN INDICATION
     Dosage: 7.5 MG, QD
     Route: 065
     Dates: start: 20190318, end: 20190331
  7. ZOPICLONE [Concomitant]
     Active Substance: ZOPICLONE
     Indication: RESTLESSNESS
     Route: 065
  8. RISPERIDONE. [Suspect]
     Active Substance: RISPERIDONE
     Indication: SLEEP DISORDER
     Dosage: 1 MG, QD
     Route: 065
     Dates: start: 20190424, end: 20190426
  9. ZOPICLONE [Concomitant]
     Active Substance: ZOPICLONE
     Indication: DEPRESSIVE SYMPTOM
  10. ZOPICLONE [Concomitant]
     Active Substance: ZOPICLONE
     Indication: SLEEP DISORDER
  11. PROMETHAZINE [Suspect]
     Active Substance: PROMETHAZINE HYDROCHLORIDE
     Indication: DEPRESSIVE SYMPTOM
     Dosage: 25 MG, QD
     Route: 065
     Dates: start: 20190403, end: 20190414
  12. PANTOPRAZOLE [Concomitant]
     Active Substance: PANTOPRAZOLE
     Indication: PRODUCT USED FOR UNKNOWN INDICATION
     Dosage: 20 MG
     Route: 065
  13. SERTRALINE [Suspect]
     Active Substance: SERTRALINE HYDROCHLORIDE
     Indication: RESTLESSNESS
     Dosage: 100 MG, QD
     Route: 065
     Dates: start: 20190403, end: 20190415
  14. PROMETHAZINE [Suspect]
     Active Substance: PROMETHAZINE HYDROCHLORIDE
     Indication: SLEEP DISORDER
     Dosage: 50 MG, QD
     Route: 065
     Dates: start: 20190415, end: 20190422
  15. TRAZODONE [Suspect]
     Active Substance: TRAZODONE HYDROCHLORIDE
     Indication: RESTLESSNESS
     Dosage: 100 MG, QD
     Route: 065
     Dates: start: 20190402, end: 20190414
  16. TRAZODONE [Suspect]
     Active Substance: TRAZODONE HYDROCHLORIDE
     Indication: MAJOR DEPRESSION
     Dosage: UNK
     Route: 065
     Dates: start: 20190424, end: 20190426
  17. SERTRALINE [Suspect]
     Active Substance: SERTRALINE HYDROCHLORIDE
     Indication: SLEEP DISORDER
     Dosage: 125 MG
     Route: 065
     Dates: end: 20190402
  18. SERTRALINE [Suspect]
     Active Substance: SERTRALINE HYDROCHLORIDE
     Indication: DEPRESSIVE SYMPTOM
     Dosage: 150 MG, QD
     Route: 065
     Dates: start: 20190416, end: 20190426
  19. SERTRALINE [Suspect]
     Active Substance: SERTRALINE HYDROCHLORIDE
     Indication: MAJOR DEPRESSION
  20. RISPERIDONE. [Suspect]
     Active Substance: RISPERIDONE
     Indication: DEPRESSIVE SYMPTOM
     Dosage: 1 MG, QD
     Route: 065
     Dates: start: 20190318, end: 20190416
  21. RISPERIDONE. [Suspect]
     Active Substance: RISPERIDONE
     Indication: RESTLESSNESS
     Dosage: 2 MG, QD
     Route: 065
     Dates: start: 20190417, end: 20190423

REACTIONS (4)
  - General symptom [Recovered/Resolved]
  - Obsessive thoughts [Recovered/Resolved]
  - Psychomotor hyperactivity [Recovered/Resolved]
  - Akathisia [Recovered/Resolved]

NARRATIVE: CASE EVENT DATE: 20190418
